FAERS Safety Report 4756470-2 (Version None)
Quarter: 2005Q3

REPORT INFORMATION
  Report Type: 
  Country: None (occurrence: None)
  Receive Date: 20050830
  Receipt Date: 20050707
  Transmission Date: 20060218
  Serious: No
  Sender: FDA-Public Use
  Company Number: US-GLAXOSMITHKLINE-A0565334A

PATIENT
  Age: 58 Year
  Sex: Female

DRUGS (5)
  1. WELLBUTRIN XL [Suspect]
     Indication: DEPRESSION
     Dosage: 150MG PER DAY
     Route: 048
     Dates: start: 20050629
  2. NEXIUM [Concomitant]
  3. METOCLOPRAMIDE [Concomitant]
  4. OXYCONTIN [Concomitant]
  5. LEXAPRO [Concomitant]

REACTIONS (2)
  - FEELING JITTERY [None]
  - HYPERHIDROSIS [None]
